FAERS Safety Report 5130348-7 (Version None)
Quarter: 2006Q4

REPORT INFORMATION
  Report Type: 
  Country: None (occurrence: None)
  Receive Date: 20061013
  Receipt Date: 20060928
  Transmission Date: 20070319
  Serious: Yes (Hospitalization)
  Sender: FDA-Public Use
  Company Number: US200605002170

PATIENT
  Age: 36 Year
  Sex: Female
  Weight: 40.8 kg

DRUGS (2)
  1. ZYPREXA [Suspect]
     Dates: start: 20000101, end: 20051101
  2. REMERON [Concomitant]

REACTIONS (2)
  - CHOLECYSTECTOMY [None]
  - PANCREATITIS [None]
